FAERS Safety Report 4870456-9 (Version None)
Quarter: 2006Q1

REPORT INFORMATION
  Report Type: 
  Country: None (occurrence: None)
  Receive Date: 20060103
  Receipt Date: 20051019
  Transmission Date: 20060701
  Serious: No
  Sender: FDA-Public Use
  Company Number: US-BRISTOL-MYERS SQUIBB COMPANY-13150560

PATIENT
  Age: 57 Year
  Sex: Female

DRUGS (4)
  1. DESYREL [Suspect]
     Route: 048
  2. TRENTAL [Concomitant]
  3. ATENOLOL [Concomitant]
  4. PREMPRO [Concomitant]

REACTIONS (1)
  - DRUG INEFFECTIVE [None]
